FAERS Safety Report 7746806-2 (Version None)
Quarter: 2011Q3

REPORT INFORMATION
  Report Type: 
  Country: None (occurrence: None)
  Receive Date: 20110907
  Receipt Date: 20110826
  Transmission Date: 20111222
  Serious: Yes (Death, Life-Threatening, Hospitalization)
  Sender: FDA-Public Use
  Company Number: 201108IM002080

PATIENT
  Age: 12 Year
  Sex: Male

DRUGS (1)
  1. INTERFERON GAMMA NOS [Suspect]
     Indication: CHRONIC GRANULOMATOUS DISEASE
     Dosage: DAILY, SUBCUTANEOUS
     Route: 058
     Dates: start: 20020101, end: 20110101

REACTIONS (4)
  - BURKHOLDERIA CEPACIA COMPLEX INFECTION [None]
  - PNEUMONIA BACTERIAL [None]
  - SEPTIC SHOCK [None]
  - PULMONARY HAEMORRHAGE [None]
